FAERS Safety Report 9668603 (Version 2)
Quarter: 2013Q4

REPORT INFORMATION
  Report Type: Spontaneous
  Country: MX (occurrence: MX)
  Receive Date: 20131105
  Receipt Date: 20131106
  Transmission Date: 20140711
  Serious: Yes (Life-Threatening, Hospitalization, Other)
  Sender: FDA-Public Use
  Company Number: MX-JNJFOC-20131015877

PATIENT
  Age: 3 Year
  Sex: Male

DRUGS (4)
  1. MOTRIN [Suspect]
     Route: 048
  2. MOTRIN [Suspect]
     Indication: PYREXIA
     Route: 048
     Dates: start: 20131009
  3. DENVAR [Concomitant]
     Indication: PRODUCT USED FOR UNKNOWN INDICATION
     Route: 065
  4. PARGEVERINE HYDROCHLORIDE [Concomitant]
     Indication: PRODUCT USED FOR UNKNOWN INDICATION
     Route: 065

REACTIONS (11)
  - Central nervous system lesion [Unknown]
  - Pancreatic disorder [Unknown]
  - Convulsion [Recovered/Resolved]
  - Hypersomnia [Unknown]
  - Electroencephalogram abnormal [Unknown]
  - Skin discolouration [Unknown]
  - Vomiting [Unknown]
  - Abdominal pain upper [Unknown]
  - Pyrexia [Unknown]
  - Platelet count decreased [Recovered/Resolved]
  - Decreased appetite [Unknown]
